FAERS Safety Report 17568993 (Version 2)
Quarter: 2020Q2

REPORT INFORMATION
  Report Type: Report from Study
  Country: MX (occurrence: MX)
  Receive Date: 20200321
  Receipt Date: 20200515
  Transmission Date: 20200713
  Serious: Yes (Other)
  Sender: FDA-Public Use
  Company Number: NVSC2020MX080824

PATIENT
  Sex: Female

DRUGS (1)
  1. TRILEPTAL [Suspect]
     Active Substance: OXCARBAZEPINE
     Indication: PRODUCT USED FOR UNKNOWN INDICATION
     Route: 065

REACTIONS (12)
  - Discomfort [Unknown]
  - Limb injury [Unknown]
  - Chest discomfort [Unknown]
  - Scar [Unknown]
  - Respiration abnormal [Unknown]
  - Crying [Unknown]
  - Somnolence [Unknown]
  - Fibrosis [Unknown]
  - Dizziness [Unknown]
  - Chest pain [Unknown]
  - Fatigue [Unknown]
  - Fear [Unknown]
